FAERS Safety Report 7630628-7 (Version None)
Quarter: 2011Q3

REPORT INFORMATION
  Report Type: 
  Country: None (occurrence: None)
  Receive Date: 20110722
  Receipt Date: 20110711
  Transmission Date: 20111222
  Serious: Yes (Other)
  Sender: FDA-Public Use
  Company Number: US-ELI_LILLY_AND_COMPANY-US201105005182

PATIENT
  Sex: Female

DRUGS (1)
  1. CYMBALTA [Suspect]
     Dosage: 60 MG, QD
     Dates: start: 20090101

REACTIONS (3)
  - BILE DUCT STENOSIS [None]
  - JAUNDICE [None]
  - SMALL INTESTINE CARCINOMA [None]
